FAERS Safety Report 17693192 (Version 1)
Quarter: 2020Q2

REPORT INFORMATION
  Report Type: Other
  Country: CA (occurrence: CA)
  Receive Date: 20200422
  Receipt Date: 20200422
  Transmission Date: 20200714
  Serious: Yes (Death, Other)
  Sender: FDA-Public Use
  Company Number: CA-APOTEX-2020AP010099

PATIENT
  Age: 17 Year
  Sex: Female

DRUGS (9)
  1. ANTIHUMANLYMFOCYT-GLOBULIN [Concomitant]
     Active Substance: THYMOCYTE IMMUNE GLOBULIN NOS
     Indication: IMMUNOSUPPRESSANT DRUG THERAPY
     Dosage: 15 MG/KG, UNK
     Route: 065
  2. PREDNISONE. [Concomitant]
     Active Substance: PREDNISONE
     Indication: IMMUNOSUPPRESSANT DRUG THERAPY
     Dosage: 2 MG/KG, QD
     Route: 065
  3. ACYCLOVIR                          /00587301/ [Suspect]
     Active Substance: ACYCLOVIR
     Indication: EPSTEIN-BARR VIRUS INFECTION
     Dosage: UNK
     Route: 042
  4. CYTOMEGALOVIRUS IMMUNE GLOBULIN [Concomitant]
     Active Substance: HUMAN CYTOMEGALOVIRUS IMMUNE GLOBULIN
     Indication: PRODUCT USED FOR UNKNOWN INDICATION
     Dosage: UNK
     Route: 065
  5. ACYCLOVIR. [Suspect]
     Active Substance: ACYCLOVIR
     Indication: EPSTEIN-BARR VIRUS INFECTION
  6. ACYCLOVIR                          /00587301/ [Suspect]
     Active Substance: ACYCLOVIR
     Indication: VIRAL INFECTION
  7. AZATHIOPRINE. [Concomitant]
     Active Substance: AZATHIOPRINE
     Indication: IMMUNOSUPPRESSANT DRUG THERAPY
     Dosage: 2.5 MG/KG, QD
     Route: 065
  8. CICLOSPORIN [Concomitant]
     Active Substance: CYCLOSPORINE
     Indication: IMMUNOSUPPRESSANT DRUG THERAPY
     Dosage: 5 MG, QD
     Route: 065
  9. ACYCLOVIR. [Suspect]
     Active Substance: ACYCLOVIR
     Indication: VIRAL INFECTION
     Dosage: UNK
     Route: 065

REACTIONS (1)
  - Drug ineffective [Fatal]
